FAERS Safety Report 7723559-5 (Version None)
Quarter: 2011Q3

REPORT INFORMATION
  Report Type: 
  Country: None (occurrence: None)
  Receive Date: 20110901
  Receipt Date: 20110830
  Transmission Date: 20111222
  Serious: No
  Sender: FDA-Public Use
  Company Number: US-PFIZER INC-2011202244

PATIENT
  Sex: Female

DRUGS (1)
  1. IBUPROFEN [Suspect]
     Dosage: 200 MG, 3X/DAY
     Route: 048

REACTIONS (2)
  - NAUSEA [None]
  - DIARRHOEA [None]
